FAERS Safety Report 10082026 (Version 2)
Quarter: 2015Q1

REPORT INFORMATION
  Report Type: Spontaneous
  Country: US (occurrence: None)
  Receive Date: 20140414
  Receipt Date: 20150224
  Transmission Date: 20150720
  Serious: Yes (Hospitalization)
  Sender: FDA-Public Use
  Company Number: UTC-046897

PATIENT
  Age: 69 Year
  Sex: Female
  Weight: 149.7 kg

DRUGS (17)
  1. ACIPHEX [Concomitant]
     Active Substance: RABEPRAZOLE SODIUM
  2. FERROUS SULFATE [Concomitant]
     Active Substance: FERROUS SULFATE\FERROUS SULFATE, DRIED
  3. KLOR-CON M10 (POTASSIUM CHLORIDE) [Concomitant]
  4. LANTUS [Concomitant]
     Active Substance: INSULIN GLARGINE
  5. GLIMEPIRIDE. [Concomitant]
     Active Substance: GLIMEPIRIDE
  6. METOLAZONE. [Concomitant]
     Active Substance: METOLAZONE
  7. FUROSEMIDE. [Concomitant]
     Active Substance: FUROSEMIDE
  8. LOPERAMIDE [Concomitant]
     Active Substance: LOPERAMIDE
  9. LYRICA [Concomitant]
     Active Substance: PREGABALIN
  10. PROVENTIL HFA (SALBUTAMOL) [Concomitant]
  11. SIMVASTATIN. [Concomitant]
     Active Substance: SIMVASTATIN
  12. SYMBICORT [Concomitant]
     Active Substance: BUDESONIDE\FORMOTEROL FUMARATE DIHYDRATE
  13. REMODULIN [Suspect]
     Active Substance: TREPROSTINIL
     Indication: PULMONARY ARTERIAL HYPERTENSION
     Route: 058
     Dates: start: 20110617
  14. ANUSOL HC [Concomitant]
     Active Substance: HYDROCORTISONE
  15. SPIRIVA (TIOTROPIUM BROMIDE) [Concomitant]
  16. NOVOLOG MIX (INSULIN ASPART, INSULIN ASPART PROTAMINE) [Concomitant]
  17. PERCOCET (OXYCODONE HYDROCHLORIDE, OXYCODONE TEREPHTHALATE, PARACETAMOL) [Concomitant]

REACTIONS (13)
  - Rectal haemorrhage [None]
  - Diarrhoea [None]
  - Respiratory rate increased [None]
  - Mental status changes [None]
  - Oedema [None]
  - Fall [None]
  - Haemorrhoids [None]
  - Bronchitis chronic [None]
  - Heart rate irregular [None]
  - Haemorrhage [None]
  - Respiratory failure [None]
  - Laceration [None]
  - Chest pain [None]

NARRATIVE: CASE EVENT DATE: 20140328
